FAERS Safety Report 9549130 (Version 1)
Quarter: 2013Q3

REPORT INFORMATION
  Report Type: Spontaneous
  Country: VE (occurrence: VE)
  Receive Date: 20130924
  Receipt Date: 20130924
  Transmission Date: 20140515
  Serious: Yes (Other)
  Sender: FDA-Public Use
  Company Number: VE-PFIZER INC-2013273610

PATIENT
  Age: 69 Year
  Sex: Female

DRUGS (1)
  1. LYRICA [Suspect]
     Dosage: 75 MG, 2X/DAY

REACTIONS (5)
  - Haematochezia [Unknown]
  - Blood urine [Unknown]
  - Blood pressure decreased [Unknown]
  - Anorectal disorder [Unknown]
  - Groin pain [Unknown]
